FAERS Safety Report 13755311 (Version 1)
Quarter: 2017Q3

REPORT INFORMATION
  Report Type: Spontaneous
  Country: US (occurrence: US)
  Receive Date: 20170714
  Receipt Date: 20170714
  Transmission Date: 20171127
  Serious: No
  Sender: FDA-Public Use
  Company Number: US-LEXICON PHARMACEUTICALS, INC-17-1606-00434

PATIENT
  Sex: Male

DRUGS (27)
  1. ACETAMINOPHEN. [Concomitant]
     Active Substance: ACETAMINOPHEN
  2. TELOTRISTAT ETHYL [Suspect]
     Active Substance: TELOTRISTAT ETHYL
     Indication: CARCINOID SYNDROME
     Route: 048
     Dates: start: 20170609
  3. CARVEDILOL. [Concomitant]
     Active Substance: CARVEDILOL
  4. PROBIOTIC [Concomitant]
     Active Substance: PROBIOTICS NOS
  5. MOISTURIZING LUBRICANT EYE [Concomitant]
  6. VITAMIN B COMPLEX [Concomitant]
     Active Substance: CYANOCOBALAMIN\DEXPANTHENOL\NIACINAMIDE\PYRIDOXINE HYDROCHLORIDE\RIBOFLAVIN 5^-PHOSPHATE SODIUM\THIAMINE HYDROCHLORIDE\VITAMIN B COMPLEX
  7. EUCALYPTUS OIL [Concomitant]
     Active Substance: EUCALYPTUS OIL
  8. LAVENDER OIL [Concomitant]
     Active Substance: LAVENDER OIL
  9. PREPARATION [Concomitant]
  10. AMOXICILLIN. [Concomitant]
     Active Substance: AMOXICILLIN
  11. TRAZODONE [Concomitant]
     Active Substance: TRAZODONE HYDROCHLORIDE
  12. NORCO [Concomitant]
     Active Substance: ACETAMINOPHEN\HYDROCODONE BITARTRATE
  13. PRAVASTATIN. [Concomitant]
     Active Substance: PRAVASTATIN
  14. FLUOXETINE [Concomitant]
     Active Substance: FLUOXETINE HYDROCHLORIDE
  15. ASPIRIN. [Concomitant]
     Active Substance: ASPIRIN
  16. IMODIUM A-D [Concomitant]
     Active Substance: LOPERAMIDE HYDROCHLORIDE
  17. LEMON OIL [Concomitant]
  18. POLYETHYLENE GLYCOL [Concomitant]
     Active Substance: POLYETHYLENE GLYCOLS
  19. BRILINTA [Concomitant]
     Active Substance: TICAGRELOR
  20. PANTROPRAZOLE SODIUM [Concomitant]
  21. SOMATULIN DEPOT [Concomitant]
  22. PHOSLO [Concomitant]
     Active Substance: CALCIUM ACETATE
  23. VITAMIN E [Concomitant]
     Active Substance: .ALPHA.-TOCOPHEROL
  24. COENZYME Q10 [Concomitant]
     Active Substance: UBIDECARENONE
  25. TRIAMCINOLON [Concomitant]
  26. EMLA [Concomitant]
     Active Substance: LIDOCAINE\PRILOCAINE
  27. GLUCOSAMINE CHONDR [Concomitant]

REACTIONS (2)
  - Pain [Unknown]
  - Drug interaction [Unknown]

NARRATIVE: CASE EVENT DATE: 2017
